FAERS Safety Report 23503422 (Version 1)
Quarter: 2024Q1

REPORT INFORMATION
  Report Type: Report from Study
  Country: US (occurrence: US)
  Receive Date: 20240208
  Receipt Date: 20240208
  Transmission Date: 20240409
  Serious: Yes (Hospitalization)
  Sender: FDA-Public Use
  Company Number: US-ABBVIE-5624548

PATIENT
  Age: 54 Year
  Sex: Male
  Weight: 64 kg

DRUGS (1)
  1. CREON [Suspect]
     Active Substance: PANCRELIPASE AMYLASE\PANCRELIPASE LIPASE\PANCRELIPASE PROTEASE
     Indication: Product used for unknown indication
     Dosage: FORM STRENGTH: 24000 UNIT?3 CAPSULE WITH MEALS AND 2 CAPSULE WITH SNACK MAXIMUM 14 CAPSULE A DAY.
     Route: 048

REACTIONS (2)
  - Abdominal pain [Unknown]
  - Dyspnoea [Unknown]

NARRATIVE: CASE EVENT DATE: 20240128
